FAERS Safety Report 6046722-0 (Version None)
Quarter: 2009Q1

REPORT INFORMATION
  Report Type: 
  Country: None (occurrence: None)
  Receive Date: 20090122
  Receipt Date: 20090115
  Transmission Date: 20090719
  Serious: Yes (Hospitalization)
  Sender: FDA-Public Use
  Company Number: FR-AVENTIS-200910125FR

PATIENT
  Age: 67 Year
  Sex: Female

DRUGS (2)
  1. LOVENOX [Suspect]
     Route: 058
     Dates: start: 20080831, end: 20081126
  2. PREVISCAN                          /00789001/ [Suspect]
     Indication: CATHETER THROMBOSIS
     Route: 048
     Dates: start: 20080801, end: 20081126

REACTIONS (3)
  - PAIN [None]
  - PRURITUS [None]
  - SKIN NECROSIS [None]
